FAERS Safety Report 7094043-X (Version None)
Quarter: 2010Q4

REPORT INFORMATION
  Report Type: 
  Country: None (occurrence: None)
  Receive Date: 20101110
  Receipt Date: 20101029
  Transmission Date: 20110411
  Serious: Yes (Life-Threatening)
  Sender: FDA-Public Use
  Company Number: ES-GILEAD-2010-0033198

PATIENT
  Age: 78 Year
  Sex: Female

DRUGS (6)
  1. RANEXA [Suspect]
     Indication: MYOCARDIAL ISCHAEMIA
     Route: 048
     Dates: start: 20100610, end: 20100613
  2. SIMVASTATIN [Concomitant]
     Indication: DYSLIPIDAEMIA
     Route: 048
  3. FUROSEMIDE [Concomitant]
     Indication: HYPERTENSION
  4. ASPIRIN [Concomitant]
     Indication: MYOCARDIAL ISCHAEMIA
  5. SINTROM [Concomitant]
     Indication: ATRIAL FIBRILLATION
  6. TOPIRAMATE [Concomitant]
     Indication: ESSENTIAL TREMOR

REACTIONS (1)
  - TORSADE DE POINTES [None]
